FAERS Safety Report 23157987 (Version 4)
Quarter: 2024Q1

REPORT INFORMATION
  Report Type: Report from Study
  Country: US (occurrence: US)
  Receive Date: 20231108
  Receipt Date: 20240307
  Transmission Date: 20240410
  Serious: Yes (Other)
  Sender: FDA-Public Use
  Company Number: US-UCBSA-2023052668

PATIENT
  Sex: Female

DRUGS (3)
  1. CERTOLIZUMAB PEGOL [Suspect]
     Active Substance: CERTOLIZUMAB PEGOL
     Indication: Psoriatic arthropathy
     Dosage: UNK
     Route: 058
     Dates: start: 20221001, end: 2023
  2. CERTOLIZUMAB PEGOL [Suspect]
     Active Substance: CERTOLIZUMAB PEGOL
     Dosage: UNK
     Route: 058
     Dates: start: 20231029
  3. CERTOLIZUMAB PEGOL [Suspect]
     Active Substance: CERTOLIZUMAB PEGOL
     Dosage: 400 MILLIGRAM, EV 4 WEEKS
     Route: 058

REACTIONS (17)
  - Psoriatic arthropathy [Not Recovered/Not Resolved]
  - Haemorrhage [Unknown]
  - Respiratory tract infection [Recovered/Resolved]
  - Psoriasis [Unknown]
  - Cough [Not Recovered/Not Resolved]
  - Infection [Unknown]
  - Illness [Unknown]
  - Dyspnoea [Unknown]
  - Chills [Unknown]
  - Pain [Unknown]
  - Blister [Not Recovered/Not Resolved]
  - Rash macular [Unknown]
  - Gait disturbance [Not Recovered/Not Resolved]
  - Skin burning sensation [Not Recovered/Not Resolved]
  - Mobility decreased [Unknown]
  - Productive cough [Unknown]
  - Therapeutic product effect incomplete [Unknown]

NARRATIVE: CASE EVENT DATE: 20230101
